FAERS Safety Report 23026580 (Version 1)
Quarter: 2023Q4

REPORT INFORMATION
  Report Type: Spontaneous
  Country: CA (occurrence: None)
  Receive Date: 20231004
  Receipt Date: 20231004
  Transmission Date: 20240110
  Serious: Yes (Disabling)
  Sender: FDA-Public Use
  Company Number: CA-PFIZER INC-202300312976

PATIENT
  Age: 51 Year
  Sex: Female

DRUGS (2)
  1. METHOTREXATE [Suspect]
     Active Substance: METHOTREXATE
     Indication: Sarcoidosis
     Dates: start: 202105
  2. METHOTREXATE [Suspect]
     Active Substance: METHOTREXATE
     Dosage: (INCREASED)
     Dates: start: 202112

REACTIONS (4)
  - Dyspnoea [Unknown]
  - Nodule [Unknown]
  - Nervous system disorder [Unknown]
  - Product use in unapproved indication [Unknown]
